FAERS Safety Report 24003007 (Version 2)
Quarter: 2024Q3

REPORT INFORMATION
  Report Type: Spontaneous
  Country: US (occurrence: US)
  Receive Date: 20240624
  Receipt Date: 20240820
  Transmission Date: 20241017
  Serious: No
  Sender: SANOFI AVENTIS
  Company Number: US-SA-SAC20240618000162

PATIENT
  Age: 65 Year
  Sex: Female
  Weight: 86 kg

DRUGS (22)
  1. DUPIXENT [Suspect]
     Active Substance: DUPILUMAB
     Indication: Dermatitis atopic
     Dosage: 600 MG, 1X
     Route: 058
     Dates: start: 20240605, end: 20240605
  2. DUPIXENT [Suspect]
     Active Substance: DUPILUMAB
     Dosage: 300 MG, QOW
     Dates: start: 202406
  3. BUPROPION [Concomitant]
     Active Substance: BUPROPION
  4. TRIAMCINOLONE ACETONIDE [Concomitant]
     Active Substance: TRIAMCINOLONE ACETONIDE
  5. CLOBETASOL [Concomitant]
     Active Substance: CLOBETASOL
  6. TACROLIMUS [Concomitant]
     Active Substance: TACROLIMUS
  7. VASCEPA [Concomitant]
     Active Substance: ICOSAPENT ETHYL
  8. VITAMIN D3 [Concomitant]
     Active Substance: CHOLECALCIFEROL
  9. VITAMIN C [Concomitant]
     Active Substance: ASCORBIC ACID
  10. COLLAGEN [Concomitant]
     Active Substance: COLLAGEN
  11. OMEPRAZOLE [Concomitant]
     Active Substance: OMEPRAZOLE
  12. LISINOPRIL [Concomitant]
     Active Substance: LISINOPRIL
  13. ESTRADIOL [Concomitant]
     Active Substance: ESTRADIOL
     Dosage: QW
  14. DULOXETINE HYDROCHLORIDE [Concomitant]
     Active Substance: DULOXETINE HYDROCHLORIDE
  15. CRESTOR [Concomitant]
     Active Substance: ROSUVASTATIN CALCIUM
  16. OXYCODONE [Concomitant]
     Active Substance: OXYCODONE
  17. HYDROCODONE [Concomitant]
     Active Substance: HYDROCODONE
  18. ZETIA [Concomitant]
     Active Substance: EZETIMIBE
  19. BUDESONIDE [Concomitant]
     Active Substance: BUDESONIDE
  20. ATORVASTATIN [Concomitant]
     Active Substance: ATORVASTATIN
  21. SULFAMETHOXAZOLE [Concomitant]
     Active Substance: SULFAMETHOXAZOLE
  22. OSTEO-BI-FLEX [Concomitant]

REACTIONS (4)
  - Injection site discomfort [Unknown]
  - Dry skin [Unknown]
  - Pruritus [Unknown]
  - Injection site pain [Unknown]

NARRATIVE: CASE EVENT DATE: 20240601
